FAERS Safety Report 24317287 (Version 4)
Quarter: 2024Q4

REPORT INFORMATION
  Report Type: Spontaneous
  Country: DE (occurrence: DE)
  Receive Date: 20240913
  Receipt Date: 20241118
  Transmission Date: 20250115
  Serious: Yes (Other)
  Sender: HRA PHARMA
  Company Number: DE-ORG100014127-2024000250

PATIENT
  Age: 40 Year
  Sex: Female

DRUGS (41)
  1. LYSODREN [Suspect]
     Active Substance: MITOTANE
     Indication: Adrenocortical carcinoma
     Dosage: 3 TABLETS PER DAY
     Route: 048
     Dates: start: 20240508
  2. LYSODREN [Suspect]
     Active Substance: MITOTANE
     Indication: Adrenocortical carcinoma
     Dosage: 5 TABLETS PER DAY
     Route: 048
     Dates: start: 20240509
  3. LYSODREN [Suspect]
     Active Substance: MITOTANE
     Indication: Adrenocortical carcinoma
     Dosage: 1 TABLET PER DAY
     Route: 048
     Dates: start: 20240510, end: 20240512
  4. LYSODREN [Suspect]
     Active Substance: MITOTANE
     Indication: Adrenocortical carcinoma
     Dosage: 3 TABLETS PER DAY
     Route: 048
     Dates: start: 20240513
  5. LYSODREN [Suspect]
     Active Substance: MITOTANE
     Indication: Adrenocortical carcinoma
     Dosage: 6 TABLETS PER DAY
     Route: 048
     Dates: start: 20240514
  6. LYSODREN [Suspect]
     Active Substance: MITOTANE
     Indication: Adrenocortical carcinoma
     Dosage: 9 TABLETS PER DAY
     Route: 048
     Dates: start: 20240515
  7. LYSODREN [Suspect]
     Active Substance: MITOTANE
     Indication: Adrenocortical carcinoma
     Dosage: 12 TABLETS PER DAY (4-0-4), AFTER THE FIRST SEIZURE, SWITCHED TO TAKEN COMPLETELY IN THE MORNING
     Route: 048
     Dates: start: 20240516, end: 20240530
  8. LYSODREN [Suspect]
     Active Substance: MITOTANE
     Indication: Adrenocortical carcinoma
     Dosage: 6 TABLETS PER DAY
     Route: 048
     Dates: start: 20240531
  9. LYSODREN [Suspect]
     Active Substance: MITOTANE
     Indication: Adrenocortical carcinoma
     Dosage: 7 TABLETS PER DAY, THEN INCREASE BY 1 TABLET IN A 3-DAY RHYTHM
     Route: 048
     Dates: start: 202407, end: 20240710
  10. LYSODREN [Suspect]
     Active Substance: MITOTANE
     Indication: Adrenocortical carcinoma
     Dosage: 8 TABLETS PER DAY
     Route: 048
     Dates: start: 20240711, end: 20240713
  11. LYSODREN [Suspect]
     Active Substance: MITOTANE
     Indication: Adrenocortical carcinoma
     Dosage: 9 TABLETS PER DAY
     Route: 048
     Dates: start: 20240714, end: 20240716
  12. LYSODREN [Suspect]
     Active Substance: MITOTANE
     Indication: Adrenocortical carcinoma
     Dosage: 10 TABLETS PER DAY
     Route: 048
     Dates: start: 20240717
  13. LYSODREN [Suspect]
     Active Substance: MITOTANE
     Indication: Adrenocortical carcinoma
     Dosage: 9 TABLETS PER DAY
     Route: 048
     Dates: start: 20240718, end: 20240808
  14. LYSODREN [Suspect]
     Active Substance: MITOTANE
     Indication: Adrenocortical carcinoma
     Dosage: 6 TABLETS PER DAY
     Route: 048
     Dates: start: 20240809, end: 20240810
  15. LYSODREN [Suspect]
     Active Substance: MITOTANE
     Indication: Adrenocortical carcinoma
     Dosage: 6 TABLETS PER DAY
     Route: 048
     Dates: start: 20240812
  16. LYSODREN [Suspect]
     Active Substance: MITOTANE
     Indication: Adrenocortical carcinoma
     Dosage: 9 TABLETS PER DAY
     Route: 048
     Dates: start: 20240813, end: 20240816
  17. LYSODREN [Suspect]
     Active Substance: MITOTANE
     Indication: Adrenocortical carcinoma
     Dosage: 5 TABLETS PER DAY
     Route: 048
     Dates: start: 20240817
  18. LYSODREN [Suspect]
     Active Substance: MITOTANE
     Indication: Adrenocortical carcinoma
     Dosage: 6 TABLETS PER DAY
     Route: 048
     Dates: start: 20240818
  19. LYSODREN [Suspect]
     Active Substance: MITOTANE
     Indication: Adrenocortical carcinoma
     Dosage: 7 TABLETS PER DAY
     Route: 048
     Dates: start: 20240819
  20. LYSODREN [Suspect]
     Active Substance: MITOTANE
     Indication: Adrenocortical carcinoma
     Dosage: 6 TABLETS PER DAY
     Route: 048
     Dates: start: 20240820, end: 20240822
  21. LYSODREN [Suspect]
     Active Substance: MITOTANE
     Indication: Adrenocortical carcinoma
     Dosage: 7 TABLETS PER DAY
     Route: 048
     Dates: start: 20240823, end: 20240824
  22. LYSODREN [Suspect]
     Active Substance: MITOTANE
     Indication: Adrenocortical carcinoma
     Dosage: 4 TABLETS PER DAY
     Route: 048
     Dates: start: 20240825
  23. LYSODREN [Suspect]
     Active Substance: MITOTANE
     Indication: Adrenocortical carcinoma
     Dosage: 7 TABLETS PER DAY
     Route: 048
     Dates: start: 20240826, end: 20240827
  24. LYSODREN [Suspect]
     Active Substance: MITOTANE
     Indication: Adrenocortical carcinoma
     Dosage: 6 TABLETS PER DAY
     Route: 048
     Dates: start: 20240828
  25. LYSODREN [Suspect]
     Active Substance: MITOTANE
     Indication: Adrenocortical carcinoma
     Dosage: 5 TABLETS PER DAY
     Route: 048
     Dates: start: 20240829
  26. LYSODREN [Suspect]
     Active Substance: MITOTANE
     Indication: Adrenocortical carcinoma
     Dosage: 6 TABLETS PER DAY
     Route: 048
     Dates: start: 20240830, end: 20240831
  27. LYSODREN [Suspect]
     Active Substance: MITOTANE
     Indication: Adrenocortical carcinoma
     Dosage: 1 TABLET PER DAY
     Route: 048
     Dates: start: 20240903, end: 20240908
  28. LYSODREN [Suspect]
     Active Substance: MITOTANE
     Indication: Adrenocortical carcinoma
     Dosage: 2 TABLET PER DAY
     Route: 048
     Dates: start: 20240909
  29. LYSODREN [Suspect]
     Active Substance: MITOTANE
     Indication: Adrenocortical carcinoma
     Dosage: 06 TABLET TAKEN IN THE MORNING
     Route: 048
     Dates: start: 202410
  30. Etoposide (EDP chemotherapy) [Concomitant]
     Indication: Adrenocortical carcinoma
     Dates: start: 20240508, end: 20240511
  31. Etoposide (EDP chemotherapy) [Concomitant]
     Indication: Adrenocortical carcinoma
     Dates: start: 20240607, end: 2024
  32. Etoposide (EDP chemotherapy) [Concomitant]
     Indication: Adrenocortical carcinoma
     Dates: start: 20240704, end: 20240707
  33. Etoposide (EDP chemotherapy) [Concomitant]
     Indication: Adrenocortical carcinoma
     Dates: start: 20240802, end: 20240805
  34. Doxorubicin (EDP chemotherapy) [Concomitant]
     Indication: Adrenocortical carcinoma
     Dates: start: 20240508, end: 20240511
  35. Doxorubicin (EDP chemotherapy) [Concomitant]
     Indication: Adrenocortical carcinoma
     Dates: start: 20240607, end: 2024
  36. Doxorubicin (EDP chemotherapy) [Concomitant]
     Indication: Adrenocortical carcinoma
     Dates: start: 20240704, end: 20240707
  37. Doxorubicin (EDP chemotherapy) [Concomitant]
     Indication: Adrenocortical carcinoma
     Dates: start: 20240802, end: 20240805
  38. Cisplatin (EDP chemotherapy) [Concomitant]
     Indication: Adrenocortical carcinoma
     Dates: start: 20240508, end: 20240511
  39. Cisplatin (EDP chemotherapy) [Concomitant]
     Indication: Adrenocortical carcinoma
     Dates: start: 20240607, end: 2024
  40. Cisplatin (EDP chemotherapy) [Concomitant]
     Indication: Adrenocortical carcinoma
     Dates: start: 20240704, end: 20240707
  41. Cisplatin (EDP chemotherapy) [Concomitant]
     Indication: Adrenocortical carcinoma
     Dates: start: 20240802, end: 20240805

REACTIONS (25)
  - Epilepsy [Recovered/Resolved]
  - Loss of consciousness [Recovered/Resolved]
  - Seizure [Recovered/Resolved]
  - Suicidal ideation [Recovered/Resolved]
  - Unresponsive to stimuli [Recovered/Resolved]
  - Aphasia [Recovered/Resolved]
  - Tremor [Recovered/Resolved]
  - Muscle spasms [Recovered/Resolved]
  - Affect lability [Recovered/Resolved]
  - Dysmorphism [Recovered/Resolved]
  - Speech disorder [Recovered/Resolved]
  - Eye movement disorder [Recovered/Resolved]
  - Mobility decreased [Recovered/Resolved]
  - Disorientation [Recovered/Resolved]
  - Mental disorder [Recovered/Resolved]
  - Hypoaesthesia [Recovered/Resolved]
  - Hypoaesthesia [Recovered/Resolved]
  - Aggression [Recovered/Resolved]
  - Nausea [Recovered/Resolved]
  - Vomiting [Recovered/Resolved]
  - Diarrhoea [Recovered/Resolved]
  - Confusional state [Recovered/Resolved]
  - Dizziness [Recovered/Resolved]
  - Fatigue [Recovered/Resolved]
  - Disturbance in attention [Recovered/Resolved]

NARRATIVE: CASE EVENT DATE: 20240516
